FAERS Safety Report 6651264-5 (Version None)
Quarter: 2010Q1

REPORT INFORMATION
  Report Type: 
  Country: None (occurrence: None)
  Receive Date: 20100325
  Receipt Date: 20100105
  Transmission Date: 20100710
  Serious: No
  Sender: FDA-Public Use
  Company Number: US-AMGEN-KDL384304

PATIENT
  Sex: Male
  Weight: 77.2 kg

DRUGS (8)
  1. PROCRIT [Suspect]
     Indication: MYELODYSPLASTIC SYNDROME
     Dates: start: 19980101
  2. NEULASTA [Suspect]
     Indication: CHEMOTHERAPY
     Dates: start: 20090801
  3. VIDAZA [Concomitant]
  4. ACYCLOVIR [Concomitant]
  5. TOPROL-XL [Concomitant]
  6. REVLIMID [Concomitant]
  7. POTASSIUM CHLORIDE [Concomitant]
  8. UNSPECIFIED ANTIHYPERTENSIVE AGENT [Concomitant]

REACTIONS (7)
  - APPETITE DISORDER [None]
  - BLOOD IRON INCREASED [None]
  - BLOOD POTASSIUM DECREASED [None]
  - BONE PAIN [None]
  - DIARRHOEA [None]
  - INJECTION SITE PAIN [None]
  - WEIGHT DECREASED [None]
